FAERS Safety Report 17042972 (Version 1)
Quarter: 2019Q4

REPORT INFORMATION
  Report Type: Spontaneous
  Country: JP (occurrence: JP)
  Receive Date: 20191118
  Receipt Date: 20191118
  Transmission Date: 20200122
  Serious: Yes (Hospitalization)
  Sender: FDA-Public Use
  Company Number: JP-AKORN PHARMACEUTICALS-2019AKN02365

PATIENT
  Age: 42 Year
  Sex: Female

DRUGS (7)
  1. LOXOPROFEN [Concomitant]
     Active Substance: LOXOPROFEN
     Indication: NASOPHARYNGITIS
  2. TRANEXAMIC ACID. [Suspect]
     Active Substance: TRANEXAMIC ACID
     Indication: PHARYNGITIS BACTERIAL
  3. TRANEXAMIC ACID. [Suspect]
     Active Substance: TRANEXAMIC ACID
     Indication: NASOPHARYNGITIS
  4. AMOXICILLIN. [Concomitant]
     Active Substance: AMOXICILLIN
     Indication: PHARYNGITIS BACTERIAL
     Route: 065
  5. AMOXICILLIN. [Concomitant]
     Active Substance: AMOXICILLIN
     Indication: NASOPHARYNGITIS
  6. TRANEXAMIC ACID. [Suspect]
     Active Substance: TRANEXAMIC ACID
     Indication: TONSILLITIS
     Route: 065
  7. LOXOPROFEN [Concomitant]
     Active Substance: LOXOPROFEN
     Indication: PHARYNGITIS BACTERIAL
     Route: 065

REACTIONS (1)
  - Fixed eruption [Recovered/Resolved]
